FAERS Safety Report 6343300-0 (Version None)
Quarter: 2009Q3

REPORT INFORMATION
  Report Type: 
  Country: None (occurrence: None)
  Receive Date: 20090908
  Receipt Date: 20090828
  Transmission Date: 20100115
  Serious: Yes (Hospitalization)
  Sender: FDA-Public Use
  Company Number: PHHO2009DE10642

PATIENT
  Sex: Female
  Weight: 61 kg

DRUGS (4)
  1. RAD 666 RAD+TAB [Suspect]
     Indication: LIVER TRANSPLANT
     Dosage: OPEN LABEL
     Route: 048
     Dates: start: 20080828
  2. DICLOFENAC [Suspect]
     Dosage: UNK
     Dates: start: 20090728
  3. NOVALGIN [Suspect]
     Indication: BURSITIS
     Dosage: UNK
     Dates: start: 20090728, end: 20090802
  4. TRAMAL [Suspect]
     Indication: BURSITIS
     Dosage: UNK
     Dates: start: 20090728, end: 20090803

REACTIONS (5)
  - BILE DUCT STENOSIS [None]
  - CHOLANGIOGRAM [None]
  - HEPATIC ENZYME INCREASED [None]
  - IMMUNOSUPPRESSANT DRUG LEVEL DECREASED [None]
  - LIVER TRANSPLANT REJECTION [None]
